FAERS Safety Report 7628381-6 (Version None)
Quarter: 2011Q3

REPORT INFORMATION
  Report Type: 
  Country: None (occurrence: None)
  Receive Date: 20110722
  Receipt Date: 20110719
  Transmission Date: 20111222
  Serious: No
  Sender: FDA-Public Use
  Company Number: US-PFIZER INC-2011143404

PATIENT
  Sex: Female

DRUGS (2)
  1. TOVIAZ [Suspect]
     Indication: BLADDER PAIN
     Dosage: 4 MG, 1X/DAY
     Route: 048
     Dates: start: 20110624
  2. CALAN [Concomitant]
     Indication: HYPERTENSION
     Dosage: 240 MG, UNK

REACTIONS (6)
  - POLLAKIURIA [None]
  - DIARRHOEA [None]
  - CONSTIPATION [None]
  - ABDOMINAL PAIN [None]
  - DRY MOUTH [None]
  - MIDDLE INSOMNIA [None]
